FAERS Safety Report 19924801 (Version 3)
Quarter: 2021Q4

REPORT INFORMATION
  Report Type: Spontaneous
  Country: US (occurrence: US)
  Receive Date: 20211006
  Receipt Date: 20211013
  Transmission Date: 20220304
  Serious: Yes (Death)
  Sender: FDA-Public Use
  Company Number: US-ROCHE-2927701

PATIENT
  Age: 52 Year
  Sex: Male

DRUGS (2)
  1. ROZLYTREK [Suspect]
     Active Substance: ENTRECTINIB
     Indication: Lung neoplasm malignant
     Route: 048
     Dates: start: 20210913
  2. ROZLYTREK [Suspect]
     Active Substance: ENTRECTINIB
     Indication: Brain neoplasm malignant

REACTIONS (1)
  - Death [Fatal]

NARRATIVE: CASE EVENT DATE: 20210925
